FAERS Safety Report 7832467-0 (Version None)
Quarter: 2011Q4

REPORT INFORMATION
  Report Type: 
  Country: None (occurrence: None)
  Receive Date: 20111023
  Receipt Date: 20111011
  Transmission Date: 20120403
  Serious: Yes (Hospitalization)
  Sender: FDA-Public Use
  Company Number: US-ELI_LILLY_AND_COMPANY-US201105003377

PATIENT
  Sex: Male

DRUGS (3)
  1. ACTOS [Concomitant]
  2. HUMALOG MIX 75/25 [Suspect]
     Indication: DIABETES MELLITUS
     Dosage: 15 U, BID
  3. METFORMIN HCL [Concomitant]
     Dosage: UNK

REACTIONS (5)
  - PANCREATITIS CHRONIC [None]
  - SEPSIS [None]
  - CHOLECYSTITIS ACUTE [None]
  - GALLBLADDER PERFORATION [None]
  - CHOLELITHIASIS [None]
